FAERS Safety Report 22184156 (Version 1)
Quarter: 2023Q2

REPORT INFORMATION
  Report Type: Report from Study
  Country: US (occurrence: US)
  Receive Date: 20230407
  Receipt Date: 20230407
  Transmission Date: 20230721
  Serious: Yes (Other)
  Sender: FDA-Public Use
  Company Number: US-ABBVIE-4714866

PATIENT
  Sex: Female

DRUGS (1)
  1. SKYRIZI [Suspect]
     Active Substance: RISANKIZUMAB-RZAA
     Indication: Crohn^s disease
     Route: 058
     Dates: start: 20220823

REACTIONS (6)
  - Chemotherapy [Unknown]
  - Bone pain [Unknown]
  - Myalgia [Unknown]
  - Vertigo [Unknown]
  - Vomiting [Unknown]
  - Fatigue [Unknown]
